FAERS Safety Report 7150090-0 (Version None)
Quarter: 2010Q4

REPORT INFORMATION
  Report Type: 
  Country: None (occurrence: None)
  Receive Date: 20101210
  Receipt Date: 20101129
  Transmission Date: 20110411
  Serious: Yes (Hospitalization)
  Sender: FDA-Public Use
  Company Number: US-ELI_LILLY_AND_COMPANY-US201012000047

PATIENT
  Sex: Female

DRUGS (6)
  1. ZYPREXA [Suspect]
     Indication: SCHIZOPHRENIA, PARANOID TYPE
     Dosage: 15 MG, DAILY (1/D)
     Dates: start: 20020101
  2. ZYPREXA [Suspect]
     Dosage: 2.5 MG, DAILY (1/D)
  3. ZYPREXA [Suspect]
     Dosage: 10 MG, DAILY (1/D)
  4. ATIVAN [Concomitant]
  5. CLONAZEPAM [Concomitant]
  6. ZOLOFT [Concomitant]

REACTIONS (11)
  - ABNORMAL BEHAVIOUR [None]
  - BLOOD THYROID STIMULATING HORMONE DECREASED [None]
  - BRAIN NEOPLASM BENIGN [None]
  - DISORIENTATION [None]
  - EATING DISORDER [None]
  - HYPERSOMNIA [None]
  - IRRITABILITY [None]
  - MOOD ALTERED [None]
  - OVERDOSE [None]
  - RESTLESSNESS [None]
  - TREMOR [None]
